FAERS Safety Report 8085441-6 (Version None)
Quarter: 2012Q1

REPORT INFORMATION
  Report Type: 
  Country: None (occurrence: None)
  Receive Date: 20120128
  Receipt Date: 20110531
  Transmission Date: 20120608
  Serious: No
  Sender: FDA-Public Use
  Company Number: US-ABBOTT-11P-163-0701149-00

PATIENT
  Sex: Female
  Weight: 68.1 kg

DRUGS (4)
  1. HUMIRA [Suspect]
     Indication: CROHN'S DISEASE
     Route: 058
     Dates: start: 20070101, end: 20100901
  2. CELEBREX [Concomitant]
     Indication: PAIN
  3. HUMIRA [Suspect]
     Route: 058
     Dates: start: 20100901
  4. PRILOSEC [Concomitant]
     Indication: GASTROOESOPHAGEAL REFLUX DISEASE

REACTIONS (4)
  - RECTAL ABSCESS [None]
  - CROHN'S DISEASE [None]
  - MUSCULOSKELETAL PAIN [None]
  - UPPER RESPIRATORY TRACT INFECTION [None]
